FAERS Safety Report 5630096-0 (Version None)
Quarter: 2008Q1

REPORT INFORMATION
  Report Type: 
  Country: None (occurrence: None)
  Receive Date: 20080218
  Receipt Date: 20080213
  Transmission Date: 20080703
  Serious: Yes (Hospitalization, Other)
  Sender: FDA-Public Use
  Company Number: PHNR2008AU00477

PATIENT
  Age: 33 Year
  Sex: Female

DRUGS (1)
  1. SYNTOCINON [Suspect]
     Dosage: 10IU
     Route: 030
     Dates: start: 20071229

REACTIONS (6)
  - DRUG INEFFECTIVE [None]
  - HAEMOGLOBIN DECREASED [None]
  - PHARMACEUTICAL PRODUCT COMPLAINT [None]
  - POSTPARTUM HAEMORRHAGE [None]
  - SURGERY [None]
  - VULVAL HAEMATOMA [None]
